FAERS Safety Report 8084648-1 (Version None)
Quarter: 2012Q1

REPORT INFORMATION
  Report Type: 
  Country: None (occurrence: None)
  Receive Date: 20120128
  Receipt Date: 20110323
  Transmission Date: 20120608
  Serious: No
  Sender: FDA-Public Use
  Company Number: US-ABBOTT-11P-163-0710968-00

PATIENT
  Sex: Female
  Weight: 63.106 kg

DRUGS (5)
  1. MULTI-VITAMIN [Concomitant]
     Indication: VITAMIN SUPPLEMENTATION
  2. HUMIRA [Suspect]
     Indication: CROHN'S DISEASE
     Dates: start: 20110101
  3. HUMIRA [Suspect]
  4. LIALDA [Concomitant]
     Indication: CROHN'S DISEASE
  5. PREDNISONE TAB [Concomitant]
     Indication: CROHN'S DISEASE

REACTIONS (3)
  - NASOPHARYNGITIS [None]
  - RESPIRATORY TRACT CONGESTION [None]
  - PRODUCTIVE COUGH [None]
